FAERS Safety Report 18360864 (Version 1)
Quarter: 2020Q4

REPORT INFORMATION
  Report Type: Spontaneous
  Country: US (occurrence: US)
  Receive Date: 20201008
  Receipt Date: 20201008
  Transmission Date: 20210114
  Serious: No
  Sender: FDA-Public Use
  Company Number: US-PFIZER INC-2020383281

PATIENT
  Sex: Female

DRUGS (1)
  1. SILVADENE [Suspect]
     Active Substance: SILVER SULFADIAZINE
     Indication: WOUND
     Dosage: UNK
     Route: 061

REACTIONS (4)
  - Intentional product misuse [Unknown]
  - Skin discolouration [Unknown]
  - Off label use [Unknown]
  - Product use in unapproved indication [Unknown]
